FAERS Safety Report 18978115 (Version 1)
Quarter: 2021Q1

REPORT INFORMATION
  Report Type: Spontaneous
  Country: US (occurrence: US)
  Receive Date: 20210307
  Receipt Date: 20210307
  Transmission Date: 20210420
  Serious: No
  Sender: FDA-Public Use
  Company Number: US-TEVA-2021-US-1886782

PATIENT
  Age: 71 Year

DRUGS (1)
  1. TRAZODONE [Suspect]
     Active Substance: TRAZODONE HYDROCHLORIDE
     Dosage: TAKING AT BEDTIME
     Route: 065

REACTIONS (12)
  - Panic attack [Recovered/Resolved]
  - Heart rate irregular [Unknown]
  - Dizziness [Recovered/Resolved]
  - Hyperhidrosis [Recovered/Resolved]
  - Anxiety [Recovered/Resolved]
  - Disorientation [Recovered/Resolved]
  - Urinary incontinence [Recovered/Resolved]
  - Illness [Unknown]
  - Tremor [Recovered/Resolved]
  - Palpitations [Recovered/Resolved]
  - Nausea [Recovered/Resolved]
  - Fatigue [Recovered/Resolved]
